FAERS Safety Report 5699991-0 (Version None)
Quarter: 2008Q2

REPORT INFORMATION
  Report Type: 
  Country: None (occurrence: None)
  Receive Date: 20080410
  Receipt Date: 20080402
  Transmission Date: 20081010
  Serious: Yes (Death, Hospitalization)
  Sender: FDA-Public Use
  Company Number: NL-JNJFOC-20080400899

PATIENT
  Sex: Male
  Weight: 95 kg

DRUGS (7)
  1. INFLIXIMAB, RECOMBINANT [Suspect]
     Indication: RHEUMATOID ARTHRITIS
  2. SALAZOPYRINE [Suspect]
     Indication: RHEUMATOID ARTHRITIS
  3. ATENOLOL [Concomitant]
     Indication: HYPERTENSION
  4. TRIAMTERENE [Concomitant]
     Indication: HYPERTENSION
  5. TEMAZEPAM [Concomitant]
     Indication: ANXIETY
  6. CALCIUM [Concomitant]
     Indication: VITAMIN SUPPLEMENTATION
  7. PARACETAMOL [Concomitant]
     Indication: RHEUMATOID ARTHRITIS

REACTIONS (1)
  - LUNG NEOPLASM MALIGNANT [None]
